FAERS Safety Report 8502399-3 (Version None)
Quarter: 2012Q3

REPORT INFORMATION
  Report Type: 
  Country: None (occurrence: None)
  Receive Date: 20120702
  Receipt Date: 20120619
  Transmission Date: 20120928
  Serious: Yes (Hospitalization)
  Sender: FDA-Public Use
  Company Number: 2012P1042713

PATIENT
  Age: 58 Year
  Sex: Female
  Weight: 162 kg

DRUGS (12)
  1. LITHIUM CARBONATE [Suspect]
     Indication: MANIA
     Dosage: 300 MG; BID,PO
     Route: 048
     Dates: start: 20120608
  2. LITHIUM CARBONATE [Suspect]
     Indication: BIPOLAR DISORDER
     Dosage: 300 MG; BID,PO
     Route: 048
     Dates: start: 20120608
  3. DEPAKOTE [Suspect]
     Indication: MANIA
     Dates: start: 19980101
  4. DEPAKOTE [Suspect]
     Indication: BIPOLAR DISORDER
     Dates: start: 19980101
  5. DEPAKOTE [Suspect]
     Indication: MANIA
     Dates: start: 20050101
  6. DEPAKOTE [Suspect]
     Indication: BIPOLAR DISORDER
     Dates: start: 20050101
  7. LITHIUM CARBONATE [Suspect]
     Indication: MANIA
     Dates: start: 19980101
  8. LITHIUM CARBONATE [Suspect]
     Indication: BIPOLAR DISORDER
     Dates: start: 19980101
  9. LITHIUM CARBONATE [Suspect]
     Indication: MANIA
     Dates: start: 19950101
  10. LITHIUM CARBONATE [Suspect]
     Indication: BIPOLAR DISORDER
     Dates: start: 19950101
  11. CLONAZEPAM [Concomitant]
  12. SEROQUEL [Concomitant]

REACTIONS (7)
  - MANIA [None]
  - PARAESTHESIA [None]
  - WEIGHT INCREASED [None]
  - MENTAL DISORDER [None]
  - VITAMIN D DECREASED [None]
  - WEIGHT FLUCTUATION [None]
  - THYROID FUNCTION TEST ABNORMAL [None]
